FAERS Safety Report 13277774 (Version 1)
Quarter: 2017Q1

REPORT INFORMATION
  Report Type: Spontaneous
  Country: US (occurrence: US)
  Receive Date: 20170228
  Receipt Date: 20170228
  Transmission Date: 20170428
  Serious: No
  Sender: FDA-Public Use
  Company Number: US-HERON THERAPEUTICS, INC-HRTX-2017-000144

PATIENT
  Age: 59 Year
  Sex: Female

DRUGS (2)
  1. DOSE-DENSE (DD) DOXORUBICIN AND CYCLOPHOSPHAMIDE [Concomitant]
     Indication: BREAST CANCER FEMALE
     Dosage: UNK
     Route: 065
  2. SUSTOL [Suspect]
     Active Substance: GRANISETRON
     Indication: PROPHYLAXIS OF NAUSEA AND VOMITING
     Dosage: 10 MG/0.4 ML, SINGLE
     Route: 058
     Dates: start: 20161205, end: 20161205

REACTIONS (1)
  - Injection site nodule [Not Recovered/Not Resolved]

NARRATIVE: CASE EVENT DATE: 20161205
